FAERS Safety Report 16483368 (Version 1)
Quarter: 2019Q2

REPORT INFORMATION
  Report Type: Spontaneous
  Country: JP (occurrence: JP)
  Receive Date: 20190627
  Receipt Date: 20190627
  Transmission Date: 20190711
  Serious: Yes (Hospitalization)
  Sender: FDA-Public Use
  Company Number: JP-JNJFOC-20190627724

PATIENT
  Age: 23 Year
  Sex: Female

DRUGS (2)
  1. CONCERTA [Suspect]
     Active Substance: METHYLPHENIDATE HYDROCHLORIDE
     Indication: AUTISM SPECTRUM DISORDER
     Route: 048
     Dates: end: 20190612
  2. STRATTERA [Concomitant]
     Active Substance: ATOMOXETINE HYDROCHLORIDE
     Dosage: UNKNOWN
     Route: 048
     Dates: end: 20190612

REACTIONS (4)
  - Hallucination, auditory [Unknown]
  - Impulsive behaviour [Unknown]
  - Product use in unapproved indication [Unknown]
  - Off label use [Unknown]
